FAERS Safety Report 9526990 (Version 1)
Quarter: 2013Q3

REPORT INFORMATION
  Report Type: Spontaneous
  Country: AU (occurrence: AU)
  Receive Date: 20130916
  Receipt Date: 20130916
  Transmission Date: 20140515
  Serious: Yes (Other)
  Sender: FDA-Public Use
  Company Number: AU-BAXTER-2013BAX035426

PATIENT
  Age: 38 Year
  Sex: Male

DRUGS (1)
  1. TISSEEL FROZEN [Suspect]
     Indication: DRUG THERAPY
     Route: 065

REACTIONS (2)
  - Arthritis bacterial [Recovered/Resolved]
  - Post procedural complication [Recovered/Resolved]
